FAERS Safety Report 9473424 (Version 1)
Quarter: 2013Q3

REPORT INFORMATION
  Report Type: Spontaneous
  Country: US (occurrence: US)
  Receive Date: 20130823
  Receipt Date: 20130823
  Transmission Date: 20140515
  Serious: No
  Sender: FDA-Public Use
  Company Number: US-BRISTOL-MYERS SQUIBB COMPANY-18966788

PATIENT
  Age: 63 Year
  Sex: Male
  Weight: 149.66 kg

DRUGS (11)
  1. SPRYCEL (CML) TABS 100 MG [Suspect]
     Indication: CHRONIC MYELOID LEUKAEMIA
     Route: 048
     Dates: start: 201211, end: 20130521
  2. ASPIRIN [Concomitant]
  3. BYSTOLIC [Concomitant]
  4. CALCIUM [Concomitant]
  5. FISH OIL [Concomitant]
  6. LISINOPRIL + HCTZ [Concomitant]
  7. NIASPAN [Concomitant]
  8. SIMVASTATIN [Concomitant]
  9. TASIGNA [Concomitant]
  10. MULTIVITAMIN [Concomitant]
  11. ZETIA [Concomitant]

REACTIONS (1)
  - Pleural effusion [Unknown]
